FAERS Safety Report 8990301 (Version 1)
Quarter: 2012Q4

REPORT INFORMATION
  Report Type: 
  Country: GB (occurrence: GB)
  Receive Date: 20121228
  Receipt Date: 20121228
  Transmission Date: 20130627
  Serious: Yes (Disabling)
  Sender: FDA-Public Use
  Company Number: GB-TEVA-377037ISR

PATIENT
  Age: 62 Year
  Sex: Male
  Weight: 78 kg

DRUGS (4)
  1. SIMVASTATIN [Suspect]
  2. SIMVASTATIN [Suspect]
  3. IRBESARTAN [Suspect]
     Indication: PREHYPERTENSION
     Route: 048
     Dates: start: 20111107, end: 20120102
  4. PIZOTIFEN [Concomitant]

REACTIONS (3)
  - Emotional distress [Recovered/Resolved]
  - Depression [Recovered/Resolved]
  - Anxiety [Recovered/Resolved]
